FAERS Safety Report 7067284-5 (Version None)
Quarter: 2010Q4

REPORT INFORMATION
  Report Type: 
  Country: None (occurrence: None)
  Receive Date: 20101028
  Receipt Date: 20101018
  Transmission Date: 20110411
  Serious: Yes (Other)
  Sender: FDA-Public Use
  Company Number: SK-BAXTER-2010BH026085

PATIENT
  Age: 55 Year
  Sex: Female

DRUGS (1)
  1. GAMMAGARD LIQUID [Suspect]
     Indication: HYPOGAMMAGLOBULINAEMIA
     Route: 065
     Dates: start: 20100701, end: 20100701

REACTIONS (3)
  - CHILLS [None]
  - CIRCULATORY COLLAPSE [None]
  - VOMITING [None]
